FAERS Safety Report 7401749-9 (Version None)
Quarter: 2011Q1

REPORT INFORMATION
  Report Type: 
  Country: None (occurrence: None)
  Receive Date: 20110329
  Receipt Date: 20110325
  Transmission Date: 20110831
  Serious: Yes (Other)
  Sender: FDA-Public Use
  Company Number: 2011SP013690

PATIENT
  Sex: Female

DRUGS (1)
  1. MARVELON (DESOGESTREL/ETHINYLESTRADIOL /00570801/) [Suspect]
     Indication: PRODUCT USED FOR UNKNOWN INDICATION
     Dosage: 1 DF;QD;PO
     Route: 048

REACTIONS (1)
  - ATRIAL FIBRILLATION [None]
